FAERS Safety Report 5939931-X (Version None)
Quarter: 2008Q4

REPORT INFORMATION
  Report Type: 
  Country: None (occurrence: None)
  Receive Date: 20081031
  Receipt Date: 20081031
  Transmission Date: 20090506
  Serious: Yes (Hospitalization)
  Sender: FDA-Public Use
  Company Number: None

PATIENT
  Age: 26 Year
  Sex: Female
  Weight: 55.4 kg

DRUGS (1)
  1. CYCLOSPORINE [Suspect]
     Indication: APLASTIC ANAEMIA
     Dosage: CYCLOSPORINE 150MG BID PO
     Route: 048
     Dates: start: 20081016, end: 20081023

REACTIONS (11)
  - AMNESIA [None]
  - CONFUSIONAL STATE [None]
  - CONSTRICTED AFFECT [None]
  - GAIT DISTURBANCE [None]
  - GRAND MAL CONVULSION [None]
  - HALLUCINATION, VISUAL [None]
  - HEADACHE [None]
  - HYPOREFLEXIA [None]
  - MUSCULAR WEAKNESS [None]
  - PARANOIA [None]
  - REVERSIBLE POSTERIOR LEUKOENCEPHALOPATHY SYNDROME [None]
